FAERS Safety Report 9229949 (Version 1)
Quarter: 2013Q2

REPORT INFORMATION
  Report Type: Spontaneous
  Country: US (occurrence: US)
  Receive Date: 20130415
  Receipt Date: 20130415
  Transmission Date: 20140414
  Serious: Yes (Other)
  Sender: FDA-Public Use
  Company Number: US-JNJFOC-20130401173

PATIENT
  Sex: Male
  Weight: 102.06 kg

DRUGS (8)
  1. DURAGESIC [Suspect]
     Indication: INTERVERTEBRAL DISC PROTRUSION
     Route: 062
     Dates: end: 2009
  2. DURAGESIC [Suspect]
     Indication: BLADDER DISORDER
     Route: 062
     Dates: end: 2009
  3. DURAGESIC [Suspect]
     Indication: NEPHROLITHIASIS
     Route: 062
     Dates: end: 2009
  4. DURAGESIC [Suspect]
     Indication: BACK PAIN
     Route: 062
     Dates: end: 2009
  5. DURAGESIC [Suspect]
     Indication: INTERVERTEBRAL DISC PROTRUSION
     Route: 062
     Dates: start: 2009
  6. DURAGESIC [Suspect]
     Indication: BLADDER DISORDER
     Route: 062
     Dates: start: 2009
  7. DURAGESIC [Suspect]
     Indication: NEPHROLITHIASIS
     Route: 062
     Dates: start: 2009
  8. DURAGESIC [Suspect]
     Indication: BACK PAIN
     Route: 062
     Dates: start: 2009

REACTIONS (6)
  - Colitis ulcerative [Not Recovered/Not Resolved]
  - Diverticulitis [Unknown]
  - Drug ineffective [Not Recovered/Not Resolved]
  - Denture wearer [Unknown]
  - Wrong technique in drug usage process [Recovered/Resolved]
  - Retching [Unknown]
